FAERS Safety Report 8456074-4 (Version None)
Quarter: 2012Q2

REPORT INFORMATION
  Report Type: 
  Country: None (occurrence: None)
  Receive Date: 20120621
  Receipt Date: 20120613
  Transmission Date: 20120825
  Serious: Yes (Hospitalization)
  Sender: FDA-Public Use
  Company Number: PHHY2012VE052157

PATIENT
  Age: 35 Year
  Sex: Female

DRUGS (3)
  1. LOSARTAN POTASSIUM [Concomitant]
     Dosage: 50 MG, UNK
  2. AMLODIPINE [Concomitant]
     Dosage: 5 MG, UNK
  3. MYFORTIC [Suspect]
     Indication: RENAL TRANSPLANT
     Dosage: 720 MG, BID
     Dates: start: 20080101, end: 20120601

REACTIONS (3)
  - INTESTINAL VILLI ATROPHY [None]
  - DIARRHOEA [None]
  - MALNUTRITION [None]
